FAERS Safety Report 23618632 (Version 1)
Quarter: 2024Q1

REPORT INFORMATION
  Report Type: Spontaneous
  Country: US (occurrence: US)
  Receive Date: 20240311
  Receipt Date: 20240311
  Transmission Date: 20240410
  Serious: No
  Sender: FDA-Public Use
  Company Number: US-ABBVIE-5669466

PATIENT
  Age: 39 Year
  Sex: Female
  Weight: 53.977 kg

DRUGS (4)
  1. BOTOX COSMETIC [Suspect]
     Active Substance: ONABOTULINUMTOXINA
     Indication: Skin wrinkling
     Dosage: TIME INTERVAL: AS NECESSARY: FORM STRENGTH: 50 MILLIGRAM
     Route: 030
     Dates: start: 20240219, end: 20240219
  2. BOTOX COSMETIC [Suspect]
     Active Substance: ONABOTULINUMTOXINA
     Indication: Skin wrinkling
     Dosage: TIME INTERVAL: AS NECESSARY: 74 UNITS?FORM STRENGTH: 50 MILLIGRAM
     Route: 030
     Dates: start: 20240206, end: 20240206
  3. LEXAPRO [Concomitant]
     Active Substance: ESCITALOPRAM OXALATE
     Indication: Anxiety
  4. ADDERALL [Concomitant]
     Active Substance: AMPHETAMINE ASPARTATE\AMPHETAMINE SULFATE\DEXTROAMPHETAMINE SACCHARATE\DEXTROAMPHETAMINE SULFATE
     Indication: Attention deficit hyperactivity disorder

REACTIONS (14)
  - Vision blurred [Recovering/Resolving]
  - Off label use [Not Recovered/Not Resolved]
  - Asthenia [Recovering/Resolving]
  - Fatigue [Recovering/Resolving]
  - Tunnel vision [Recovering/Resolving]
  - Dysphagia [Recovering/Resolving]
  - Diplopia [Recovering/Resolving]
  - Mastication disorder [Recovering/Resolving]
  - Dyspnoea [Not Recovered/Not Resolved]
  - Tongue movement disturbance [Recovering/Resolving]
  - Eye movement disorder [Not Recovered/Not Resolved]
  - Grip strength decreased [Not Recovered/Not Resolved]
  - Dry eye [Not Recovered/Not Resolved]
  - Dry mouth [Not Recovered/Not Resolved]

NARRATIVE: CASE EVENT DATE: 20240201
